FAERS Safety Report 10736133 (Version 1)
Quarter: 2015Q1

REPORT INFORMATION
  Report Type: Spontaneous
  Country: US (occurrence: US)
  Receive Date: 20150126
  Receipt Date: 20150126
  Transmission Date: 20150721
  Serious: Yes (Other)
  Sender: FDA-Public Use
  Company Number: US-JNJFOC-20131210505

PATIENT
  Sex: Male

DRUGS (6)
  1. LUVOX [Concomitant]
     Active Substance: FLUVOXAMINE MALEATE
     Route: 065
  2. ADDERALL [Concomitant]
     Active Substance: AMPHETAMINE ASPARTATE\AMPHETAMINE SULFATE\DEXTROAMPHETAMINE SACCHARATE\DEXTROAMPHETAMINE SULFATE
     Dosage: 5 TO 30 MG
     Route: 065
  3. CLONIDINE. [Concomitant]
     Active Substance: CLONIDINE
     Route: 065
  4. RITALIN [Concomitant]
     Active Substance: METHYLPHENIDATE HYDROCHLORIDE
     Route: 065
  5. RISPERDAL [Suspect]
     Active Substance: RISPERIDONE
     Indication: ABNORMAL BEHAVIOUR
     Route: 048
  6. CONCERTA [Concomitant]
     Active Substance: METHYLPHENIDATE HYDROCHLORIDE
     Route: 065

REACTIONS (7)
  - Type 2 diabetes mellitus [Unknown]
  - Eye movement disorder [Unknown]
  - Gynaecomastia [Recovering/Resolving]
  - Insulin resistance [Unknown]
  - Obesity [Recovering/Resolving]
  - Emotional distress [Unknown]
  - Product use issue [Unknown]
